FAERS Safety Report 4952325-9 (Version None)
Quarter: 2006Q1

REPORT INFORMATION
  Report Type: 
  Country: None (occurrence: None)
  Receive Date: 20060131
  Receipt Date: 20041130
  Transmission Date: 20060701
  Serious: Yes (Hospitalization)
  Sender: FDA-Public Use
  Company Number: WAES 0411USA04212

PATIENT
  Age: 41 Year
  Sex: Female
  Weight: 61.6892 kg

DRUGS (15)
  1. INVANZ [Suspect]
     Indication: CELLULITIS
     Dosage: 500 MG/DAILY/IV
     Route: 042
     Dates: start: 20040923, end: 20041003
  2. INVANZ [Suspect]
     Indication: OSTEOMYELITIS
     Dosage: 500 MG/DAILY/IV
     Route: 042
     Dates: start: 20040923, end: 20041003
  3. CELLCEPT [Concomitant]
  4. LEVOTHROID [Concomitant]
  5. LIPITOR [Concomitant]
  6. PLETAL [Concomitant]
  7. PROGRAF [Concomitant]
  8. RAPAMUNE [Concomitant]
  9. REGLAN [Concomitant]
  10. RENAGEL [Concomitant]
  11. VICODIN [Concomitant]
  12. ZOLOFT [Concomitant]
  13. PREDNISONE [Concomitant]
  14. SODIUM CHLORIDE [Concomitant]
  15. WATER, STERILE [Concomitant]

REACTIONS (1)
  - HALLUCINATION [None]
